FAERS Safety Report 23210471 (Version 2)
Quarter: 2023Q4

REPORT INFORMATION
  Report Type: Report from Study
  Country: AU (occurrence: AU)
  Receive Date: 20231121
  Receipt Date: 20231129
  Transmission Date: 20240110
  Serious: Yes (Death, Other)
  Sender: FDA-Public Use
  Company Number: AU-002147023-NVSC2023AU245663

PATIENT
  Sex: Male

DRUGS (1)
  1. MEKINIST [Suspect]
     Active Substance: TRAMETINIB DIMETHYL SULFOXIDE
     Indication: Neoplasm malignant
     Dosage: 1 DOSAGE FORM, QD
     Route: 065
     Dates: start: 20231014, end: 20231111

REACTIONS (7)
  - Death [Fatal]
  - Condition aggravated [Unknown]
  - Liver disorder [Unknown]
  - Lethargy [Unknown]
  - Dry mouth [Unknown]
  - Malaise [Unknown]
  - Fatigue [Unknown]

NARRATIVE: CASE EVENT DATE: 20230101
